FAERS Safety Report 10416721 (Version 1)
Quarter: 2014Q3

REPORT INFORMATION
  Report Type: Spontaneous
  Country: FR (occurrence: FR)
  Receive Date: 20140828
  Receipt Date: 20140828
  Transmission Date: 20150326
  Serious: Yes (Life-Threatening)
  Sender: FDA-Public Use
  Company Number: FR-ASTRAZENECA-2014SE63668

PATIENT
  Age: 27194 Day
  Sex: Female
  Weight: 78 kg

DRUGS (3)
  1. ATORVASTATINE [Concomitant]
     Active Substance: ATORVASTATIN
     Route: 048
     Dates: start: 20140312, end: 20140312
  2. AMLOR [Concomitant]
     Active Substance: AMLODIPINE BESYLATE
     Route: 048
     Dates: start: 20140312, end: 20140312
  3. TENORMIN [Suspect]
     Active Substance: ATENOLOL
     Route: 048
     Dates: start: 20140312, end: 20140312

REACTIONS (1)
  - Toxicity to various agents [Recovered/Resolved]

NARRATIVE: CASE EVENT DATE: 20140312
